FAERS Safety Report 18385006 (Version 1)
Quarter: 2020Q4

REPORT INFORMATION
  Report Type: Spontaneous
  Country: DE (occurrence: DE)
  Receive Date: 20201015
  Receipt Date: 20201015
  Transmission Date: 20210114
  Serious: Yes (Other)
  Sender: FDA-Public Use
  Company Number: DE-BIOGEN-2020BI00933813

PATIENT
  Age: 42 Year
  Sex: Female

DRUGS (1)
  1. TYSABRI [Suspect]
     Active Substance: NATALIZUMAB
     Indication: MULTIPLE SCLEROSIS
     Dosage: INFUSED OVER ONE HOUR
     Route: 042
     Dates: start: 2014

REACTIONS (1)
  - Deafness [Not Recovered/Not Resolved]

NARRATIVE: CASE EVENT DATE: 20201002
